FAERS Safety Report 4543523-7 (Version None)
Quarter: 2005Q1

REPORT INFORMATION
  Report Type: 
  Country: None (occurrence: None)
  Receive Date: 20050103
  Receipt Date: 20041227
  Transmission Date: 20050727
  Serious: Yes (Hospitalization, Other)
  Sender: FDA-Public Use
  Company Number: US-BRISTOL-MYERS SQUIBB COMPANY-12806790

PATIENT
  Age: 70 Year
  Sex: Male
  Weight: 77 kg

DRUGS (7)
  1. COUMADIN [Suspect]
     Indication: QUADRUPLE VESSEL BYPASS GRAFT
     Dosage: VARYING DOSES
     Route: 048
     Dates: start: 20030101
  2. COUMADIN [Suspect]
     Indication: AORTIC VALVE REPLACEMENT
     Dosage: VARYING DOSES
     Route: 048
     Dates: start: 20030101
  3. LOPRESSOR [Concomitant]
  4. NAMENDA [Concomitant]
  5. ALLOPURINOL [Concomitant]
  6. GLUCOSAMINE [Concomitant]
  7. MULTIVITAMIN [Concomitant]

REACTIONS (3)
  - HERNIA [None]
  - INTERNATIONAL NORMALISED RATIO FLUCTUATION [None]
  - NECROSIS [None]
